FAERS Safety Report 5674047-1 (Version None)
Quarter: 2008Q1

REPORT INFORMATION
  Report Type: 
  Country: None (occurrence: None)
  Receive Date: 20080319
  Receipt Date: 20080319
  Transmission Date: 20080703
  Serious: Yes (Other)
  Sender: FDA-Public Use
  Company Number: None

PATIENT
  Age: 3 Year
  Sex: Female

DRUGS (2)
  1. XOPENEX HFA [Suspect]
     Indication: URTICARIA
     Dosage: 2 PUFFS Q4-6HR INHALATION
     Route: 055
     Dates: start: 20080208
  2. ZITHROMAX [Concomitant]

REACTIONS (1)
  - URTICARIA [None]
